FAERS Safety Report 20024465 (Version 1)
Quarter: 2021Q4

REPORT INFORMATION
  Report Type: Report from Study
  Country: GB (occurrence: GB)
  Receive Date: 20211102
  Receipt Date: 20211102
  Transmission Date: 20220303
  Serious: Yes (Other)
  Sender: FDA-Public Use
  Company Number: GB-SAMSUNG BIOEPIS-SB-2020-14608

PATIENT
  Age: 63 Year
  Sex: Male

DRUGS (2)
  1. METHOTREXATE [Suspect]
     Active Substance: METHOTREXATE
     Indication: Product used for unknown indication
     Dosage: UNK
     Route: 065
  2. ADALIMUMAB [Suspect]
     Active Substance: ADALIMUMAB
     Indication: Psoriatic arthropathy
     Dosage: 40 MILLIGRAM, BIWEEKLY
     Route: 058
     Dates: start: 20190221

REACTIONS (8)
  - Hyperkeratosis [Unknown]
  - Post procedural infection [Unknown]
  - Pain [Unknown]
  - Localised infection [Recovered/Resolved]
  - Drug ineffective [Unknown]
  - Fatigue [Unknown]
  - Foot deformity [Unknown]
  - Limb discomfort [Unknown]
